FAERS Safety Report 21819885 (Version 1)
Quarter: 2023Q1

REPORT INFORMATION
  Report Type: Spontaneous
  Country: JP (occurrence: JP)
  Receive Date: 20230104
  Receipt Date: 20230104
  Transmission Date: 20230418
  Serious: Yes (Hospitalization, Other)
  Sender: FDA-Public Use
  Company Number: JP-BAXTER-2022BAX025796

PATIENT
  Age: 8 Decade
  Sex: Male

DRUGS (1)
  1. REGUNEAL LCA [Suspect]
     Active Substance: CALCIUM CHLORIDE\DEXTROSE MONOHYDRATE\HYDROCHLORIC ACID\MAGNESIUM CHLORIDE\SODIUM BICARBONATE\SODIUM
     Indication: Chronic kidney disease
     Dosage: UNK
     Route: 033
     Dates: start: 20210601

REACTIONS (6)
  - Peritonitis [Recovered/Resolved]
  - Feeling abnormal [Unknown]
  - Abdominal pain [Unknown]
  - Peritoneal cloudy effluent [Recovered/Resolved]
  - Inflammation [Recovered/Resolved]
  - Pyrexia [Unknown]

NARRATIVE: CASE EVENT DATE: 20221129
